FAERS Safety Report 8620919-5 (Version None)
Quarter: 2012Q3

REPORT INFORMATION
  Report Type: 
  Country: None (occurrence: None)
  Receive Date: 20120824
  Receipt Date: 20120821
  Transmission Date: 20120928
  Serious: Yes (Other)
  Sender: FDA-Public Use
  Company Number: NZ-PFIZER INC-2012205273

PATIENT

DRUGS (1)
  1. LIPITOR [Suspect]
     Indication: ARTERIOSCLEROSIS
     Dosage: UNK

REACTIONS (2)
  - HEPATIC ENZYME INCREASED [None]
  - HEPATITIS VIRAL [None]
